FAERS Safety Report 6605246-X (Version None)
Quarter: 2010Q1

REPORT INFORMATION
  Report Type: 
  Country: None (occurrence: None)
  Receive Date: 20100226
  Receipt Date: 20100223
  Transmission Date: 20100710
  Serious: Yes (Hospitalization)
  Sender: FDA-Public Use
  Company Number: DE-BAYER-201016929GPV

PATIENT
  Age: 75 Year
  Sex: Male

DRUGS (5)
  1. AVELOX [Suspect]
     Indication: CHOLECYSTITIS ACUTE
     Route: 042
     Dates: start: 20100209, end: 20100210
  2. CLEXANE [Concomitant]
  3. NOVALGIN [Concomitant]
  4. APROVEL + HCT [Concomitant]
  5. PANTOZOL [Concomitant]

REACTIONS (1)
  - CHOLECYSTITIS ACUTE [None]
